FAERS Safety Report 7069213 (Version 2)
Quarter: 2014Q3

REPORT INFORMATION
  Report Type: Spontaneous
  Country: US (occurrence: None)
  Receive Date: 20090724
  Receipt Date: 20140730
  Transmission Date: 20150326
  Serious: Yes (Hospitalization, Other)
  Sender: FDA-Public Use
  Company Number: 2009S1005549

PATIENT
  Age: 62 Year
  Sex: Female

DRUGS (10)
  1. LEVOXYL (LEVOTHYROXINE SODIUM) [Concomitant]
  2. ASPIRIN (ACETYLSALICYLIC ACID) [Concomitant]
     Active Substance: ASPIRIN
  3. VITAMIN E [Concomitant]
     Active Substance: .ALPHA.-TOCOPHEROL
  4. PHOSPHO-SODA [Suspect]
     Active Substance: SODIUM PHOSPHATE, DIBASIC\SODIUM PHOSPHATE, MONOBASIC
     Indication: COLONOSCOPY
     Dates: start: 200503, end: 200503
  5. VITAMIN C [Concomitant]
     Active Substance: ASCORBIC ACID
  6. PRILOSEC (OMEPRAZOLE) [Concomitant]
     Active Substance: OMEPRAZOLE MAGNESIUM
  7. DIOVAN HCT (HYDROCHLOROTHIAZIDE, VALSARTAN) [Concomitant]
  8. TRIAMCINOLONE (TRIAMCINOLONE) (OINTMENT) [Concomitant]
  9. CALCIUM [Concomitant]
     Active Substance: CALCIUM
  10. VITAMIN B 12 (VITAMIN B NOS) [Concomitant]

REACTIONS (9)
  - Renal failure acute [None]
  - Dyspnoea [None]
  - Renal failure [None]
  - Acute prerenal failure [None]
  - Sputum purulent [None]
  - Vomiting [None]
  - Nausea [None]
  - Fatigue [None]
  - Flank pain [None]

NARRATIVE: CASE EVENT DATE: 200503
